FAERS Safety Report 6241228-8 (Version None)
Quarter: 2009Q2

REPORT INFORMATION
  Report Type: 
  Country: None (occurrence: None)
  Receive Date: 20090623
  Receipt Date: 20090618
  Transmission Date: 20091009
  Serious: Yes (Life-Threatening, Hospitalization)
  Sender: FDA-Public Use
  Company Number: US-MERCK-0906USA03693

PATIENT
  Age: 17 Year
  Sex: Female

DRUGS (2)
  1. SINGULAIR [Suspect]
     Indication: ASTHMA
     Route: 048
  2. PROAIR HFA [Concomitant]
     Route: 065

REACTIONS (1)
  - SELF INJURIOUS BEHAVIOUR [None]
